FAERS Safety Report 8863077 (Version 5)
Quarter: 2013Q3

REPORT INFORMATION
  Report Type: Report from Study
  Country: IN (occurrence: IN)
  Receive Date: 20121026
  Receipt Date: 20130826
  Transmission Date: 20140515
  Serious: Yes (Death, Hospitalization)
  Sender: FDA-Public Use
  Company Number: IN-SANOFI-AVENTIS-2012SA077235

PATIENT
  Age: 51 Year
  Sex: Male
  Weight: 62 kg

DRUGS (5)
  1. DOCETAXEL [Suspect]
     Indication: NON-SMALL CELL LUNG CANCER STAGE IV
     Route: 041
     Dates: start: 20121010, end: 20121010
  2. INVESTIGATIONAL DRUG [Suspect]
     Indication: NON-SMALL CELL LUNG CANCER STAGE IV
     Route: 041
     Dates: start: 20121010, end: 20121010
  3. DEXAMETHASONE [Concomitant]
     Dates: start: 20121009, end: 20121011
  4. PANTOPRAZOLE [Concomitant]
     Dates: start: 20121009, end: 20121011
  5. GRANISETRON [Concomitant]
     Dates: start: 20121010, end: 20121012

REACTIONS (1)
  - Supraventricular tachycardia [Fatal]
